FAERS Safety Report 13033620 (Version 1)
Quarter: 2016Q4

REPORT INFORMATION
  Report Type: Spontaneous
  Country: US (occurrence: US)
  Receive Date: 20161216
  Receipt Date: 20161216
  Transmission Date: 20170207
  Serious: No
  Sender: FDA-Public Use
  Company Number: US-AMGEN-USASP2016175811

PATIENT
  Age: 6 Year
  Sex: Male

DRUGS (1)
  1. ENBREL [Suspect]
     Active Substance: ETANERCEPT
     Indication: PRODUCT USED FOR UNKNOWN INDICATION
     Dosage: 12.5 MG, UNK (USE THE ENBREL 25MG PREFILLED SYRINGE TO INJECT 12.5MG)
     Route: 065

REACTIONS (2)
  - Wrong technique in product usage process [Unknown]
  - Drug prescribing error [Unknown]
